FAERS Safety Report 6448667-0 (Version None)
Quarter: 2009Q4

REPORT INFORMATION
  Report Type: 
  Country: None (occurrence: None)
  Receive Date: 20091120
  Receipt Date: 20091112
  Transmission Date: 20100525
  Serious: Yes (Hospitalization)
  Sender: FDA-Public Use
  Company Number: FR-PFIZER INC-2009296520

PATIENT
  Age: 70 Year
  Sex: Female

DRUGS (3)
  1. AMLOR [Suspect]
     Indication: HYPERTENSION
     Dosage: UNK
     Route: 048
     Dates: end: 20081214
  2. RISPERDAL [Suspect]
     Dosage: UNK
     Route: 048
     Dates: end: 20081214
  3. MEMANTINE [Suspect]
     Dosage: UNK
     Route: 048
     Dates: end: 20081214

REACTIONS (2)
  - APHASIA [None]
  - EXTRAPYRAMIDAL DISORDER [None]
